FAERS Safety Report 9996426 (Version 2)
Quarter: 2014Q2

REPORT INFORMATION
  Report Type: Report from Study
  Country: GB (occurrence: GB)
  Receive Date: 20140311
  Receipt Date: 20140428
  Transmission Date: 20141212
  Serious: Yes (Death)
  Sender: FDA-Public Use
  Company Number: GB-VIIV HEALTHCARE LIMITED-B0975783A

PATIENT
  Age: 69 Year
  Sex: Male
  Weight: 74.8 kg

DRUGS (9)
  1. MARAVIROC [Suspect]
     Indication: HIV INFECTION
     Dosage: 300MG PER DAY
     Route: 048
     Dates: start: 20101013, end: 20140223
  2. CHEMOTHERAPY [Suspect]
  3. DARUNAVIR [Concomitant]
     Indication: HIV INFECTION
     Dosage: 800MG PER DAY
     Dates: start: 20090625, end: 20140223
  4. RITONAVIR [Concomitant]
     Indication: HIV INFECTION
     Dosage: 100MG PER DAY
     Dates: start: 20090616, end: 20140223
  5. BENDROFLUMETHIAZIDE [Concomitant]
     Indication: HYPERTENSION
     Route: 048
     Dates: start: 201109
  6. PACLITAXEL [Concomitant]
     Indication: CHOROID MELANOMA
     Route: 042
     Dates: start: 20140130, end: 20140221
  7. CARBOPLATIN [Concomitant]
     Indication: CHOROID MELANOMA
     Route: 042
     Dates: start: 20140130, end: 20140221
  8. DOMPERIDONE [Concomitant]
     Indication: NAUSEA
  9. DEXAMETHASONE [Concomitant]
     Dates: end: 20140223

REACTIONS (4)
  - Sepsis [Fatal]
  - Cellulitis [Fatal]
  - Multi-organ failure [Fatal]
  - Septic shock [Fatal]
